FAERS Safety Report 5367236-7 (Version None)
Quarter: 2007Q2

REPORT INFORMATION
  Report Type: 
  Country: None (occurrence: None)
  Receive Date: 20070622
  Receipt Date: 20070613
  Transmission Date: 20071010
  Serious: Yes (Other)
  Sender: FDA-Public Use
  Company Number: PHBS2007JP10065

PATIENT
  Age: 73 Year
  Sex: Female

DRUGS (2)
  1. ZOMETA [Suspect]
     Indication: BONE LESION
     Dosage: 4 MG, QMO
     Route: 042
     Dates: start: 20060509
  2. AREDIA [Suspect]
     Indication: BONE LESION
     Route: 042
     Dates: start: 20030812, end: 20060501

REACTIONS (4)
  - GINGIVITIS [None]
  - MALOCCLUSION [None]
  - OSTEOMYELITIS [None]
  - TOOTHACHE [None]
